FAERS Safety Report 24620698 (Version 1)
Quarter: 2024Q4

REPORT INFORMATION
  Report Type: Spontaneous
  Country: US (occurrence: None)
  Receive Date: 20241114
  Receipt Date: 20241114
  Transmission Date: 20250115
  Serious: Yes (Death)
  Sender: Public
  Company Number: None

PATIENT
  Age: 57 Year
  Sex: Female

DRUGS (10)
  1. AMBRISENTAN [Suspect]
     Active Substance: AMBRISENTAN
     Indication: Pulmonary arterial hypertension
     Dosage: 10MG QD ORAL
     Route: 048
     Dates: start: 20111107, end: 20241114
  2. SILDENAFIL [Suspect]
     Active Substance: SILDENAFIL
  3. LEVOTHYROXINE [Concomitant]
  4. ZYPREXA [Concomitant]
  5. ONDANSETRON [Concomitant]
  6. GABAPENTIN [Concomitant]
     Active Substance: GABAPENTIN
  7. TORSEMIDE [Concomitant]
  8. MAGNESIUM OXIDE [Concomitant]
  9. CALCIUM WITH VIT D [Concomitant]
  10. METHAMPHETAMINE [Concomitant]
     Active Substance: METHAMPHETAMINE

REACTIONS (4)
  - Acute respiratory failure [None]
  - Fall [None]
  - Cardiogenic shock [None]
  - Cardiac failure acute [None]

NARRATIVE: CASE EVENT DATE: 20241107
